FAERS Safety Report 24086920 (Version 1)
Quarter: 2024Q3

REPORT INFORMATION
  Report Type: Spontaneous
  Country: CL (occurrence: CL)
  Receive Date: 20240713
  Receipt Date: 20240713
  Transmission Date: 20241016
  Serious: Yes (Other)
  Sender: TEVA
  Company Number: CL-TEVA-VS-3218038

PATIENT
  Age: 45 Year
  Sex: Male

DRUGS (2)
  1. BETAMETHASONE SODIUM PHOSPHATE [Suspect]
     Active Substance: BETAMETHASONE SODIUM PHOSPHATE
     Indication: Enthesopathy
     Dosage: DOSAGE: 3 MG/ML 3 MG/ML ONE SINGLE DOSE
     Route: 030
     Dates: start: 20240701, end: 20240701
  2. COXIDOL [Concomitant]

REACTIONS (9)
  - Hypertensive crisis [Not Recovered/Not Resolved]
  - Tachycardia [Not Recovered/Not Resolved]
  - Erythema [Not Recovered/Not Resolved]
  - Discomfort [Not Recovered/Not Resolved]
  - Insomnia [Not Recovered/Not Resolved]
  - Restlessness [Not Recovered/Not Resolved]
  - Arthritis [Not Recovered/Not Resolved]
  - Erythema [Not Recovered/Not Resolved]
  - Renal disorder [Not Recovered/Not Resolved]

NARRATIVE: CASE EVENT DATE: 20240701
